FAERS Safety Report 8756832 (Version 1)
Quarter: 2012Q4

REPORT INFORMATION
  Report Type: 
  Country: BR (occurrence: BR)
  Receive Date: 20120828
  Receipt Date: 20120828
  Transmission Date: 20130627
  Serious: Yes (Hospitalization, Other)
  Sender: FDA-Public Use
  Company Number: BR-SANOFI-AVENTIS-2012SA059364

PATIENT
  Age: 40 Year
  Sex: Female
  Weight: 88 kg

DRUGS (12)
  1. LANTUS [Suspect]
     Indication: TYPE 2 DIABETES MELLITUS
     Route: 058
     Dates: start: 201202
  2. SOLOSTAR [Suspect]
     Indication: DEVICE THERAPY
     Dates: start: 201202
  3. APIDRA SOLOSTAR [Suspect]
     Indication: TYPE 2 DIABETES MELLITUS
     Route: 058
     Dates: start: 201205
  4. SOLOSTAR [Suspect]
     Indication: DEVICE THERAPY
     Dates: start: 201205
  5. HYGROTON [Concomitant]
     Indication: URINE OUTPUT
     Route: 048
     Dates: start: 201207
  6. ASPIRIN [Concomitant]
     Indication: ANTIPLATELET THERAPY
     Route: 048
     Dates: start: 201207
  7. HYDRALAZINE [Concomitant]
     Indication: BLOOD PRESSURE
     Route: 048
     Dates: start: 201207
  8. CARVEDILOL [Concomitant]
     Indication: HEART DISORDER
     Route: 048
     Dates: start: 201207
  9. LASIX [Concomitant]
     Indication: FLUID RETENTION
     Route: 048
     Dates: start: 201207
  10. ENALAPRIL MALEATE [Concomitant]
     Indication: BLOOD PRESSURE
     Route: 048
     Dates: start: 201207
  11. OMEPRAZOLE [Concomitant]
     Indication: GASTRIC DISORDER
     Route: 048
     Dates: start: 201203
  12. SIMVASTATIN [Concomitant]
     Indication: CHOLESTEROL
     Route: 048
     Dates: start: 201207

REACTIONS (10)
  - Infarction [Recovering/Resolving]
  - Fluid retention [Not Recovered/Not Resolved]
  - Cough [Recovering/Resolving]
  - Dyspnoea [Not Recovered/Not Resolved]
  - Fluid retention [Not Recovered/Not Resolved]
  - Abdominal distension [Recovering/Resolving]
  - Vomiting [Recovering/Resolving]
  - Diabetic retinopathy [Not Recovered/Not Resolved]
  - Visual impairment [Not Recovered/Not Resolved]
  - Eye haemorrhage [Not Recovered/Not Resolved]
